FAERS Safety Report 12701214 (Version 1)
Quarter: 2016Q3

REPORT INFORMATION
  Report Type: Spontaneous
  Country: US (occurrence: None)
  Receive Date: 20160830
  Receipt Date: 20160830
  Transmission Date: 20161109
  Serious: No
  Sender: FDA-Public Use
  Company Number: None

PATIENT
  Age: 74 Year
  Sex: Female
  Weight: 84.37 kg

DRUGS (17)
  1. AMLODIPINE BESYLATE. [Concomitant]
     Active Substance: AMLODIPINE BESYLATE
  2. MECLIZINE [Concomitant]
     Active Substance: MECLIZINE HYDROCHLORIDE
  3. IBUPROPHIN [Concomitant]
  4. DAILY VITAMIN [Concomitant]
     Active Substance: VITAMINS
  5. ATENOLOL. [Concomitant]
     Active Substance: ATENOLOL
  6. RANITIDINE. [Concomitant]
     Active Substance: RANITIDINE
  7. FLONASE [Concomitant]
     Active Substance: FLUTICASONE PROPIONATE
  8. CALCIUM [Concomitant]
     Active Substance: CALCIUM
  9. GAS-X [Concomitant]
     Active Substance: DIMETHICONE
  10. CIPRO [Suspect]
     Active Substance: CIPROFLOXACIN HYDROCHLORIDE
     Indication: CYSTITIS
     Route: 048
     Dates: start: 20160801, end: 20160802
  11. LEVOTHYROXINE. [Concomitant]
     Active Substance: LEVOTHYROXINE
  12. OMEPRAZOLE DR [Concomitant]
     Active Substance: OMEPRAZOLE
  13. SPIRIVA RESPRIMAT [Concomitant]
  14. ASPIRIN. [Concomitant]
     Active Substance: ASPIRIN
  15. LOVASTATINE [Concomitant]
     Active Substance: LOVASTATIN
  16. SYMBICORT [Concomitant]
     Active Substance: BUDESONIDE\FORMOTEROL FUMARATE DIHYDRATE
  17. VITAMIN D [Concomitant]
     Active Substance: CHOLECALCIFEROL

REACTIONS (10)
  - Pain in extremity [None]
  - Feeling jittery [None]
  - Nausea [None]
  - Chest discomfort [None]
  - Insomnia [None]
  - Dyspepsia [None]
  - Nervousness [None]
  - Constipation [None]
  - Gastrooesophageal reflux disease [None]
  - Myalgia [None]

NARRATIVE: CASE EVENT DATE: 20150803
